FAERS Safety Report 7659527-1 (Version None)
Quarter: 2011Q3

REPORT INFORMATION
  Report Type: 
  Country: None (occurrence: None)
  Receive Date: 20110805
  Receipt Date: 20110801
  Transmission Date: 20111222
  Serious: Yes (Hospitalization)
  Sender: FDA-Public Use
  Company Number: US-AMGEN-USACT2011038274

PATIENT
  Age: 51 Year
  Sex: Male

DRUGS (4)
  1. CINACALCET HYDROCHLORIDE [Suspect]
     Indication: HYPERPARATHYROIDISM SECONDARY
     Dates: start: 20070620
  2. PLACEBO [Suspect]
     Indication: HYPERPARATHYROIDISM SECONDARY
     Dates: start: 20070620
  3. RIFAMPIN [Concomitant]
  4. DOXYCYCLINE [Concomitant]

REACTIONS (1)
  - LOWER LIMB FRACTURE [None]
